FAERS Safety Report 6664654-1 (Version None)
Quarter: 2010Q1

REPORT INFORMATION
  Report Type: 
  Country: None (occurrence: None)
  Receive Date: 20100330
  Receipt Date: 20100326
  Transmission Date: 20100710
  Serious: Yes (Death, Hospitalization)
  Sender: FDA-Public Use
  Company Number: 2007SP011724

PATIENT
  Age: 74 Year
  Sex: Male
  Weight: 44 kg

DRUGS (4)
  1. TEMODAL [Suspect]
     Indication: GLIOBLASTOMA MULTIFORME
     Dosage: PO; 150 MG/M2; QD; PO
     Route: 048
     Dates: start: 20060908, end: 20060912
  2. TEMODAL [Suspect]
     Indication: GLIOBLASTOMA MULTIFORME
     Dosage: PO; 150 MG/M2; QD; PO
     Route: 048
     Dates: start: 20061005, end: 20061009
  3. RAMELTEON [Concomitant]
  4. SELENICA R [Concomitant]

REACTIONS (4)
  - BRONCHITIS [None]
  - DISEASE PROGRESSION [None]
  - GLIOBLASTOMA MULTIFORME [None]
  - PNEUMONIA ASPIRATION [None]
